FAERS Safety Report 9355535 (Version 1)
Quarter: 2013Q2

REPORT INFORMATION
  Report Type: Spontaneous
  Country: US (occurrence: None)
  Receive Date: 20130618
  Receipt Date: 20130618
  Transmission Date: 20140414
  Serious: Yes (Life-Threatening, Hospitalization)
  Sender: FDA-Public Use
  Company Number: None

PATIENT
  Age: 65 Year
  Sex: Male
  Weight: 81.65 kg

DRUGS (14)
  1. DILAUDID [Suspect]
     Indication: MIGRAINE
     Dosage: 2     1403     INTRAVENOUS?       1429
     Route: 042
     Dates: start: 20130526, end: 20130526
  2. REGLAN [Suspect]
  3. BACLOFEN [Concomitant]
  4. LISINOPRIL [Concomitant]
  5. FUROSEMIDE [Concomitant]
  6. CYCLOBENZAPRINE HYDROCODONE [Concomitant]
  7. NASONEX [Concomitant]
  8. SIMVASTATIN [Concomitant]
  9. SENNALAX S [Concomitant]
  10. MIRALAX [Concomitant]
  11. PRILOSEC [Concomitant]
  12. ASPIRIN [Concomitant]
  13. MULTIVITAMIN [Concomitant]
  14. FISH OIL [Concomitant]

REACTIONS (3)
  - Respiratory depression [None]
  - Psychotic disorder [None]
  - Aggression [None]
